FAERS Safety Report 9415606 (Version 10)
Quarter: 2014Q4

REPORT INFORMATION
  Report Type: Spontaneous
  Country: US (occurrence: US)
  Receive Date: 20130723
  Receipt Date: 20141003
  Transmission Date: 20150529
  Serious: Yes (Hospitalization, Other)
  Sender: FDA-Public Use
  Company Number: US-009507513-1307USA010281

PATIENT
  Sex: Female
  Weight: 51.25 kg

DRUGS (3)
  1. ALENDRONATE SODIUM. [Suspect]
     Active Substance: ALENDRONATE SODIUM
     Indication: OSTEOPOROSIS
     Dosage: 70 MG, UNK
     Route: 048
     Dates: start: 20080415
  2. FOSAMAX PLUS D [Suspect]
     Active Substance: ALENDRONATE SODIUM\CHOLECALCIFEROL
     Indication: OSTEOPOROSIS
     Dosage: 70 MG/5600 IU, QW
     Route: 048
     Dates: start: 20080809, end: 20110113
  3. FOSAMAX [Suspect]
     Active Substance: ALENDRONATE SODIUM
     Indication: OSTEOPOROSIS
     Dosage: 70 MG, UNK
     Route: 048
     Dates: start: 20040225, end: 20071208

REACTIONS (48)
  - Low turnover osteopathy [Unknown]
  - Anxiety [Unknown]
  - Cyst [Unknown]
  - Swelling [Unknown]
  - Rib fracture [Recovering/Resolving]
  - Toothache [Recovering/Resolving]
  - Hypersensitivity [Unknown]
  - Chapped lips [Unknown]
  - Nasopharyngitis [Unknown]
  - Bone disorder [Unknown]
  - Lymphadenopathy [Unknown]
  - Pain in extremity [Unknown]
  - Adverse event [Unknown]
  - Nasopharyngitis [Unknown]
  - Sinus disorder [Unknown]
  - Gastrointestinal disorder [Unknown]
  - Osteoarthritis [Unknown]
  - Fungal infection [Unknown]
  - Intramedullary rod insertion [Unknown]
  - Femur fracture [Recovered/Resolved]
  - Wrist fracture [Unknown]
  - Nasopharyngitis [Unknown]
  - Infection [Unknown]
  - Enteritis [Not Recovered/Not Resolved]
  - Treatment failure [Unknown]
  - Adverse event [Unknown]
  - Adverse event [Unknown]
  - Fall [Unknown]
  - Head injury [Unknown]
  - Sensitivity of teeth [Recovering/Resolving]
  - Vision blurred [Recovered/Resolved]
  - Femur fracture [Recovered/Resolved]
  - Anaemia postoperative [Unknown]
  - Adverse event [Unknown]
  - Hypertension [Unknown]
  - Sinus disorder [Unknown]
  - Haemorrhoids [Unknown]
  - Paraesthesia [Recovering/Resolving]
  - Vitreous floaters [Recovering/Resolving]
  - Musculoskeletal chest pain [Unknown]
  - Musculoskeletal pain [Unknown]
  - Constipation [Unknown]
  - Fall [Unknown]
  - Vitamin D deficiency [Unknown]
  - Chapped lips [Unknown]
  - Nasopharyngitis [Unknown]
  - Ileal ulcer [Unknown]
  - Infection [Unknown]

NARRATIVE: CASE EVENT DATE: 2004
